FAERS Safety Report 5796367-2 (Version None)
Quarter: 2008Q2

REPORT INFORMATION
  Report Type: 
  Country: None (occurrence: None)
  Receive Date: 20080618
  Receipt Date: 20070813
  Transmission Date: 20081010
  Serious: Yes (Other)
  Sender: FDA-Public Use
  Company Number: 200714725US

PATIENT
  Age: 62 Year
  Sex: Male

DRUGS (6)
  1. LANTUS [Suspect]
     Indication: TYPE 2 DIABETES MELLITUS
     Dosage: 60 U
  2. OPTICLIK [Suspect]
     Indication: TYPE 2 DIABETES MELLITUS
  3. DIABETIC PILL [Concomitant]
  4. HTN MEDS [Concomitant]
  5. DIURETICS [Concomitant]
  6. PIOGLITAZONE [Concomitant]

REACTIONS (1)
  - HYPERGLYCAEMIA [None]
